FAERS Safety Report 19205236 (Version 1)
Quarter: 2021Q2

REPORT INFORMATION
  Report Type: Report from Study
  Country: CA (occurrence: CA)
  Receive Date: 20210503
  Receipt Date: 20210503
  Transmission Date: 20210717
  Serious: Yes (Other)
  Sender: FDA-Public Use
  Company Number: CA-MYLANLABS-2021M1025921

PATIENT
  Age: 27 Year
  Sex: Female

DRUGS (1)
  1. HULIO [Suspect]
     Active Substance: ADALIMUMAB-FKJP
     Indication: CROHN^S DISEASE
     Dosage: WEEK 0=160 MG, WEEK 2=80 MG, THEN 40 MG EVERY OTHER WEEK, BEGINNING WEEK 4 (SC)
     Route: 058

REACTIONS (1)
  - Syncope [Unknown]
